FAERS Safety Report 5932227-1 (Version None)
Quarter: 2008Q4

REPORT INFORMATION
  Report Type: 
  Country: None (occurrence: None)
  Receive Date: 20081021
  Receipt Date: 20081006
  Transmission Date: 20090506
  Serious: Yes (Other)
  Sender: FDA-Public Use
  Company Number: 2008100023

PATIENT
  Sex: Female

DRUGS (1)
  1. MEPROBAMATE [Suspect]
     Dosage: ORAL
     Route: 048

REACTIONS (5)
  - ABORTION SPONTANEOUS [None]
  - DRUG EXPOSURE DURING PREGNANCY [None]
  - INCORRECT DOSE ADMINISTERED [None]
  - POISONING DELIBERATE [None]
  - SUICIDE ATTEMPT [None]
